FAERS Safety Report 6312090-X (Version None)
Quarter: 2009Q3

REPORT INFORMATION
  Report Type: 
  Country: None (occurrence: None)
  Receive Date: 20090813
  Receipt Date: 20090813
  Transmission Date: 20100115
  Serious: No
  Sender: FDA-Public Use
  Company Number: None

PATIENT
  Age: 57 Year
  Sex: Female
  Weight: 65.7716 kg

DRUGS (1)
  1. IMITREX [Suspect]
     Indication: MIGRAINE
     Dosage: 1/2 TABLET AS NEEDED FOR MIGR PO
     Route: 048
     Dates: start: 20090103, end: 20090315

REACTIONS (4)
  - DRUG INEFFECTIVE [None]
  - IMPAIRED WORK ABILITY [None]
  - MIGRAINE [None]
  - PRODUCT SUBSTITUTION ISSUE [None]
